FAERS Safety Report 11457305 (Version 1)
Quarter: 2015Q3

REPORT INFORMATION
  Report Type: Spontaneous
  Country: US (occurrence: US)
  Receive Date: 20150904
  Receipt Date: 20150904
  Transmission Date: 20151125
  Serious: Yes (Hospitalization)
  Sender: FDA-Public Use
  Company Number: US-ROCHE-1629827

PATIENT
  Age: 87 Year
  Sex: Male
  Weight: 50.85 kg

DRUGS (1)
  1. ESBRIET [Suspect]
     Active Substance: PIRFENIDONE
     Indication: IDIOPATHIC PULMONARY FIBROSIS
     Route: 048
     Dates: start: 20150812

REACTIONS (9)
  - Nausea [Unknown]
  - Weight decreased [Unknown]
  - Constipation [Unknown]
  - Blood sodium decreased [Unknown]
  - Head injury [Recovering/Resolving]
  - Syncope [Recovered/Resolved]
  - White blood cell count increased [Unknown]
  - Asthenia [Unknown]
  - Haemoglobin decreased [Unknown]

NARRATIVE: CASE EVENT DATE: 20150814
